FAERS Safety Report 16958011 (Version 3)
Quarter: 2019Q4

REPORT INFORMATION
  Report Type: Spontaneous
  Country: IT (occurrence: IT)
  Receive Date: 20191024
  Receipt Date: 20191217
  Transmission Date: 20200122
  Serious: Yes (Other)
  Sender: FDA-Public Use
  Company Number: IT-JNJFOC-20191027863

PATIENT
  Age: 41 Year
  Sex: Male

DRUGS (3)
  1. TAVOR (LORAZEPAM) [Suspect]
     Active Substance: LORAZEPAM
     Indication: PRODUCT USED FOR UNKNOWN INDICATION
     Dosage: 20 DOSAGE FORMS IN TOTAL
     Route: 048
     Dates: start: 20191017, end: 20191017
  2. INVEGA [Suspect]
     Active Substance: PALIPERIDONE
     Indication: PRODUCT USED FOR UNKNOWN INDICATION
     Dosage: IN TOTAL
     Route: 048
     Dates: start: 20191017, end: 20191017
  3. FELISON [Suspect]
     Active Substance: FLURAZEPAM MONOHYDROCHLORIDE
     Indication: PRODUCT USED FOR UNKNOWN INDICATION
     Dosage: IN TOTAL
     Route: 048
     Dates: start: 20191017, end: 20191017

REACTIONS (5)
  - Intentional self-injury [Recovering/Resolving]
  - Toxicity to various agents [Unknown]
  - Dysarthria [Recovering/Resolving]
  - Speech disorder [Recovering/Resolving]
  - Hypokinesia [Recovering/Resolving]

NARRATIVE: CASE EVENT DATE: 20191017
